FAERS Safety Report 20909835 (Version 1)
Quarter: 2022Q2

REPORT INFORMATION
  Report Type: Spontaneous
  Country: US (occurrence: KR)
  Receive Date: 20220603
  Receipt Date: 20220603
  Transmission Date: 20220720
  Serious: Yes (Other)
  Sender: FDA-Public Use
  Company Number: US-NOVARTISPH-NVSC2022KR125137

PATIENT
  Age: 55 Year
  Sex: Male

DRUGS (1)
  1. ALPELISIB [Suspect]
     Active Substance: ALPELISIB
     Indication: Squamous cell carcinoma of head and neck
     Dosage: 350 MG, QD
     Route: 065
     Dates: start: 201804, end: 201904

REACTIONS (4)
  - Squamous cell carcinoma of head and neck [Unknown]
  - Malignant neoplasm progression [Unknown]
  - Therapy partial responder [Unknown]
  - Product use in unapproved indication [Unknown]
